FAERS Safety Report 9523271 (Version 2)
Quarter: 2013Q4

REPORT INFORMATION
  Report Type: Report from Study
  Country: US (occurrence: US)
  Receive Date: 20130913
  Receipt Date: 20131008
  Transmission Date: 20140711
  Serious: No
  Sender: FDA-Public Use
  Company Number: US-PURDUE-USA-2013-0106300

PATIENT
  Age: 54 Year
  Sex: Female
  Weight: 61.22 kg

DRUGS (3)
  1. OXYCONTIN (NDA 22-272) [Suspect]
     Indication: PAIN
     Dosage: 40 MG, BID
     Route: 048
  2. OXYCONTIN (NDA 22-272) [Suspect]
     Dosage: 30 MG, TID
     Route: 048
     Dates: start: 20130819
  3. OXYCONTIN (NDA 22-272) [Suspect]
     Dosage: UNK

REACTIONS (1)
  - Pain [Not Recovered/Not Resolved]
